FAERS Safety Report 8276922-0 (Version None)
Quarter: 2012Q2

REPORT INFORMATION
  Report Type: 
  Country: None (occurrence: None)
  Receive Date: 20120412
  Receipt Date: 20120405
  Transmission Date: 20120825
  Serious: Yes (Other)
  Sender: FDA-Public Use
  Company Number: CA-PFIZER INC-2012087389

PATIENT
  Sex: Male

DRUGS (4)
  1. LYRICA [Suspect]
     Dosage: 75MG, 2 CAPSULES AT BEDTIME
  2. APO-TRAMACET [Concomitant]
     Dosage: UNK
  3. LYRICA [Suspect]
     Dosage: 150 MG 1 CAPSULE AT BEDTIME
  4. METHOTREXATE [Concomitant]
     Dosage: 2.5MG X 8 TABLETS 1X/WEEK

REACTIONS (4)
  - ERYTHEMA [None]
  - CHEST PAIN [None]
  - THROAT LESION [None]
  - HYPERSENSITIVITY [None]
